FAERS Safety Report 7608771-8 (Version None)
Quarter: 2011Q3

REPORT INFORMATION
  Report Type: 
  Country: None (occurrence: None)
  Receive Date: 20110714
  Receipt Date: 20110704
  Transmission Date: 20111222
  Serious: Yes (Hospitalization)
  Sender: FDA-Public Use
  Company Number: JP-JNJFOC-20110408408

PATIENT
  Age: 31 Year
  Sex: Male
  Weight: 60 kg

DRUGS (8)
  1. ZYRTEC [Concomitant]
     Indication: PROPHYLAXIS
     Route: 048
     Dates: start: 20110203, end: 20110308
  2. CALCIUM CARBONATE [Concomitant]
     Indication: PROPHYLAXIS
     Dates: start: 20110203, end: 20110308
  3. ISONIAZID [Concomitant]
     Indication: ANTIBIOTIC PROPHYLAXIS
     Dates: start: 20110203
  4. REMICADE [Suspect]
     Indication: ANKYLOSING SPONDYLITIS
     Route: 042
     Dates: start: 20110121
  5. REMICADE [Suspect]
     Dosage: TOTAL 2 INFUSIONS
     Route: 042
     Dates: start: 20110203
  6. PYDOXAL [Concomitant]
     Indication: PROPHYLAXIS
     Route: 048
     Dates: start: 20110203
  7. ALFAROL [Concomitant]
     Indication: PROPHYLAXIS
     Dosage: 0.25 RG DAILY
     Route: 048
     Dates: start: 20110203, end: 20110308
  8. NON STEROIDAL ANTI-INFLAMMATORY DRUGS [Concomitant]
     Indication: ANKYLOSING SPONDYLITIS

REACTIONS (1)
  - LYMPH NODE TUBERCULOSIS [None]
